FAERS Safety Report 11405629 (Version 2)
Quarter: 2015Q4

REPORT INFORMATION
  Report Type: Spontaneous
  Country: US (occurrence: US)
  Receive Date: 20150821
  Receipt Date: 20151008
  Transmission Date: 20160304
  Serious: No
  Sender: FDA-Public Use
  Company Number: US-PFIZER INC-2015276072

PATIENT
  Age: 62 Year
  Sex: Male

DRUGS (1)
  1. VENLAFAXINE HCL [Suspect]
     Active Substance: VENLAFAXINE HYDROCHLORIDE
     Indication: NEUROPATHY PERIPHERAL
     Dosage: 37.5 MG, 1X/DAY
     Dates: start: 20141119, end: 20141203

REACTIONS (9)
  - Nervousness [Unknown]
  - Abnormal dreams [Unknown]
  - Nausea [Unknown]
  - Insomnia [Unknown]
  - Fatigue [Unknown]
  - Feeling abnormal [Recovered/Resolved]
  - Drug intolerance [Unknown]
  - Headache [Unknown]
  - Drug ineffective [Unknown]
